FAERS Safety Report 11730635 (Version 1)
Quarter: 2015Q4

REPORT INFORMATION
  Report Type: Spontaneous
  Country: US (occurrence: US)
  Receive Date: 20151110
  Receipt Date: 20151110
  Transmission Date: 20160304
  Serious: No
  Sender: FDA-Public Use
  Company Number: US-ELI_LILLY_AND_COMPANY-US201202002272

PATIENT
  Sex: Female

DRUGS (1)
  1. FORTEO [Suspect]
     Active Substance: TERIPARATIDE
     Indication: OSTEOPOROSIS

REACTIONS (8)
  - Eye pain [Unknown]
  - Visual impairment [Unknown]
  - Headache [Unknown]
  - Tooth discolouration [Unknown]
  - Vision blurred [Unknown]
  - Enamel anomaly [Unknown]
  - Lacrimation increased [Unknown]
  - Pain in extremity [Unknown]
